FAERS Safety Report 4273322-5 (Version None)
Quarter: 2004Q1

REPORT INFORMATION
  Report Type: 
  Country: None (occurrence: None)
  Receive Date: 20040119
  Receipt Date: 20031016
  Transmission Date: 20041129
  Serious: Yes (Hospitalization)
  Sender: FDA-Public Use
  Company Number: 200313965FR

PATIENT
  Age: 60 Year
  Sex: Male

DRUGS (2)
  1. ARAVA [Suspect]
     Route: 048
     Dates: start: 20030515, end: 20031001
  2. UNKNOWN DRUG [Concomitant]

REACTIONS (10)
  - ALANINE AMINOTRANSFERASE INCREASED [None]
  - ASPARTATE AMINOTRANSFERASE INCREASED [None]
  - BILIRUBIN CONJUGATED INCREASED [None]
  - BLOOD ALKALINE PHOSPHATASE INCREASED [None]
  - BLOOD BILIRUBIN INCREASED [None]
  - GAMMA-GLUTAMYLTRANSFERASE INCREASED [None]
  - HEPATIC TRAUMA [None]
  - HEPATOCELLULAR DAMAGE [None]
  - JAUNDICE [None]
  - PANCREATITIS [None]
